FAERS Safety Report 4517303-2 (Version None)
Quarter: 2005Q1

REPORT INFORMATION
  Report Type: 
  Country: None (occurrence: None)
  Receive Date: 20041005
  Receipt Date: 20040709
  Transmission Date: 20050727
  Serious: No
  Sender: FDA-Public Use
  Company Number: SU-2004-002506

PATIENT
  Age: 60 Year
  Sex: Female
  Weight: 87.9978 kg

DRUGS (5)
  1. BENICAR HCT [Suspect]
     Indication: HYPERTENSION
     Dosage: 20.125 MG QD PO
     Route: 048
     Dates: start: 20040601
  2. ATENOLOL [Suspect]
     Indication: HYPERTENSION
     Dosage: 50 MG QD PO
     Route: 048
     Dates: start: 20040601
  3. GLUCOVANCE [Suspect]
     Indication: DIABETES MELLITUS
     Dosage: 2.5 MG BID PO
     Route: 048
     Dates: start: 20040601, end: 20040601
  4. VERAPAMIL [Concomitant]
  5. GLIPIZIDE [Concomitant]

REACTIONS (3)
  - OEDEMA PERIPHERAL [None]
  - PARAESTHESIA ORAL [None]
  - PRURITUS GENERALISED [None]
